FAERS Safety Report 5021807-6 (Version None)
Quarter: 2006Q2

REPORT INFORMATION
  Report Type: 
  Country: None (occurrence: None)
  Receive Date: 20060605
  Receipt Date: 20060522
  Transmission Date: 20061013
  Serious: Yes (Other)
  Sender: FDA-Public Use
  Company Number: US200605004722

PATIENT
  Age: 8 Year
  Sex: Male

DRUGS (3)
  1. ZYPREXA [Suspect]
     Dosage: 2.5 MG, DAILY (1/D)
     Dates: start: 20060101
  2. CONCERTA [Concomitant]
  3. CLONIDINE [Concomitant]

REACTIONS (3)
  - DRUG DOSE OMISSION [None]
  - DYSARTHRIA [None]
  - LETHARGY [None]
